FAERS Safety Report 4586958-9 (Version None)
Quarter: 2005Q1

REPORT INFORMATION
  Report Type: 
  Country: None (occurrence: None)
  Receive Date: 20050218
  Receipt Date: 20050215
  Transmission Date: 20050727
  Serious: Yes (Hospitalization)
  Sender: FDA-Public Use
  Company Number: PHBS2005CH02284

PATIENT
  Age: 19 Year
  Sex: Female

DRUGS (1)
  1. TORECAN [Suspect]
     Indication: NAUSEA
     Dosage: 1 DF, QD
     Route: 048

REACTIONS (3)
  - BITE [None]
  - DYSKINESIA [None]
  - DYSPHAGIA [None]
